FAERS Safety Report 20959985 (Version 1)
Quarter: 2022Q2

REPORT INFORMATION
  Report Type: Spontaneous
  Country: US (occurrence: US)
  Receive Date: 20220615
  Receipt Date: 20220615
  Transmission Date: 20220720
  Serious: No
  Sender: FDA-Public Use
  Company Number: US-AMGEN-USASP2022099286

PATIENT
  Sex: Female

DRUGS (6)
  1. XGEVA [Suspect]
     Active Substance: DENOSUMAB
     Indication: Plasma cell myeloma
     Dosage: 120 MILLIGRAM, QMO
     Route: 065
     Dates: start: 20220608
  2. XGEVA [Suspect]
     Active Substance: DENOSUMAB
     Indication: Spinal cord neoplasm
  3. XGEVA [Suspect]
     Active Substance: DENOSUMAB
     Indication: Bone cancer
  4. XGEVA [Suspect]
     Active Substance: DENOSUMAB
     Indication: Off label use
  5. CALCIUM [Concomitant]
     Active Substance: CALCIUM
     Dosage: 1200 MILLIGRAM
     Route: 065
  6. VITAMIN D [Concomitant]
     Active Substance: VITAMIN D NOS
     Dosage: 600 MILLIGRAM, BID
     Route: 065

REACTIONS (1)
  - Off label use [Unknown]

NARRATIVE: CASE EVENT DATE: 20220608
